FAERS Safety Report 17170271 (Version 1)
Quarter: 2019Q4

REPORT INFORMATION
  Report Type: Report from Study
  Country: US (occurrence: US)
  Receive Date: 20191218
  Receipt Date: 20191218
  Transmission Date: 20200122
  Serious: Yes (Death)
  Sender: FDA-Public Use
  Company Number: US-ACTELION PHARMACEUTICALS LTD.-A-US2016-139985

PATIENT
  Age: 49 Year
  Sex: Female

DRUGS (1)
  1. OPSUMIT [Suspect]
     Active Substance: MACITENTAN
     Indication: PULMONARY ARTERIAL HYPERTENSION
     Dosage: 10 MG, QD
     Route: 048
     Dates: start: 20131122, end: 20191020

REACTIONS (5)
  - Insomnia [Unknown]
  - Pneumonia [Recovering/Resolving]
  - Connective tissue disorder [Unknown]
  - Death [Fatal]
  - Inflammation [Unknown]

NARRATIVE: CASE EVENT DATE: 201607
